FAERS Safety Report 5002356-8 (Version None)
Quarter: 2006Q2

REPORT INFORMATION
  Report Type: 
  Country: None (occurrence: None)
  Receive Date: 20060512
  Receipt Date: 20060504
  Transmission Date: 20061013
  Serious: Yes (Death, Hospitalization, Other)
  Sender: FDA-Public Use
  Company Number: FR200601001684

PATIENT
  Age: 65 Year
  Sex: Male
  Weight: 65 kg

DRUGS (5)
  1. GEMZAR [Suspect]
     Indication: ADENOCARCINOMA PANCREAS
     Dosage: SEE IMAGE
     Route: 042
     Dates: start: 20050617, end: 20050915
  2. GEMZAR [Suspect]
     Indication: ADENOCARCINOMA PANCREAS
     Dosage: SEE IMAGE
     Route: 042
     Dates: start: 20050921, end: 20051101
  3. GEMZAR [Suspect]
     Indication: ADENOCARCINOMA PANCREAS
     Dosage: SEE IMAGE
     Route: 042
     Dates: start: 20051118, end: 20051118
  4. FLUOROURACIL [Concomitant]
  5. LEUCOVORIN CALCIUM [Concomitant]

REACTIONS (6)
  - BLOOD PRESSURE INCREASED [None]
  - CARBOHYDRATE ANTIGEN 19-9 INCREASED [None]
  - FALL [None]
  - GENERAL PHYSICAL HEALTH DETERIORATION [None]
  - HAEMOLYTIC URAEMIC SYNDROME [None]
  - PNEUMONIA ASPIRATION [None]
